FAERS Safety Report 9626112 (Version 1)
Quarter: 2013Q4

REPORT INFORMATION
  Report Type: Spontaneous
  Country: US (occurrence: US)
  Receive Date: 20131016
  Receipt Date: 20131016
  Transmission Date: 20140711
  Serious: No
  Sender: FDA-Public Use
  Company Number: US-TEVA-438347USA

PATIENT
  Sex: Male
  Weight: 123.94 kg

DRUGS (6)
  1. NUVIGIL [Suspect]
     Indication: SLEEP APNOEA SYNDROME
  2. NUVIGIL [Suspect]
     Dates: start: 20131007
  3. OMEPRAZOLE [Concomitant]
  4. SIMVASTATIN [Concomitant]
     Indication: BLOOD CHOLESTEROL ABNORMAL
  5. BYSTOLIC [Concomitant]
     Indication: BLOOD PRESSURE ABNORMAL
  6. FLOMAX [Concomitant]
     Indication: NEPHROLITHIASIS

REACTIONS (3)
  - Tardive dyskinesia [Not Recovered/Not Resolved]
  - Throat irritation [Not Recovered/Not Resolved]
  - Dry mouth [Not Recovered/Not Resolved]
